FAERS Safety Report 5606052-5 (Version None)
Quarter: 2008Q1

REPORT INFORMATION
  Report Type: 
  Country: None (occurrence: None)
  Receive Date: 20080129
  Receipt Date: 20080128
  Transmission Date: 20080703
  Serious: Yes (Life-Threatening, Hospitalization)
  Sender: FDA-Public Use
  Company Number: US-BRISTOL-MYERS SQUIBB COMPANY-13866868

PATIENT
  Age: 38 Year
  Sex: Male

DRUGS (2)
  1. TEQUIN [Suspect]
     Indication: ABSCESS
     Dosage: 1 DOSAGE FORM = 1 TABLET.
     Dates: start: 20050307
  2. TEQUIN [Suspect]
     Indication: CELLULITIS
     Dosage: 1 DOSAGE FORM = 1 TABLET.
     Dates: start: 20050307

REACTIONS (2)
  - DIABETES MELLITUS [None]
  - HYPOGLYCAEMIA [None]
